FAERS Safety Report 15221515 (Version 1)
Quarter: 2018Q3

REPORT INFORMATION
  Report Type: Spontaneous
  Country: US (occurrence: US)
  Receive Date: 20180705
  Receipt Date: 20180705
  Transmission Date: 20181010
  Serious: No
  Sender: FDA-Public Use
  Company Number: None

PATIENT
  Age: 49 Year
  Sex: Male
  Weight: 83.91 kg

DRUGS (1)
  1. LEVAQUIN [Suspect]
     Active Substance: LEVOFLOXACIN
     Indication: INFECTION
     Dosage: ?          QUANTITY:1 DOSE IV;?
     Route: 042
     Dates: start: 20180421, end: 20180421

REACTIONS (8)
  - Hypertension [None]
  - Tendon disorder [None]
  - Joint noise [None]
  - Chills [None]
  - Middle insomnia [None]
  - Tremor [None]
  - Hypoaesthesia [None]
  - Tendon pain [None]

NARRATIVE: CASE EVENT DATE: 20180421
